FAERS Safety Report 5047118-0 (Version None)
Quarter: 2006Q3

REPORT INFORMATION
  Report Type: 
  Country: None (occurrence: None)
  Receive Date: 20060703
  Receipt Date: 20060621
  Transmission Date: 20061208
  Serious: Yes (Other)
  Sender: FDA-Public Use
  Company Number: 2006078845

PATIENT
  Age: 77 Year
  Sex: Male

DRUGS (10)
  1. NORVASC [Suspect]
     Dosage: 10 MG (10 MG, DAILY), ORAL
     Route: 048
     Dates: start: 20051123
  2. INDERAL LA [Suspect]
     Dosage: 80 MG, ORAL
     Route: 048
  3. ALLOPURINOL [Concomitant]
  4. DARBEPOETIN ALFA [Concomitant]
  5. ACETYLSALICYLIC ACID SRT [Concomitant]
  6. ATORVASTATIN CALCIUM [Concomitant]
  7. MULTIVITAMIN [Concomitant]
  8. VENOFER [Concomitant]
  9. COVERSYL (PERINDOPRIL) [Concomitant]
  10. EXTRA STRENGTH TYLENOL [Concomitant]

REACTIONS (3)
  - GLOMERULAR FILTRATION RATE DECREASED [None]
  - HAEMODIALYSIS [None]
  - RENAL IMPAIRMENT [None]
